FAERS Safety Report 4646795-3 (Version None)
Quarter: 2005Q2

REPORT INFORMATION
  Report Type: 
  Country: None (occurrence: None)
  Receive Date: 20050427
  Receipt Date: 20050418
  Transmission Date: 20051028
  Serious: Yes (Other)
  Sender: FDA-Public Use
  Company Number: IL-BRISTOL-MYERS SQUIBB COMPANY-12937686

PATIENT
  Age: 40 Year
  Sex: Female

DRUGS (3)
  1. PACLITAXEL [Suspect]
     Indication: BREAST CANCER
  2. PACLITAXEL [Interacting]
     Indication: LUNG NEOPLASM MALIGNANT
  3. TRASTUZUMAB [Interacting]
     Dosage: 225 MG WEEKLY FOLLOWED BY 110 MG WEEKLY

REACTIONS (3)
  - DRUG INTERACTION [None]
  - ONYCHOLYSIS [None]
  - PHOTOSENSITIVITY REACTION [None]
